FAERS Safety Report 7893535-0 (Version None)
Quarter: 2011Q4

REPORT INFORMATION
  Report Type: 
  Country: None (occurrence: None)
  Receive Date: 20111104
  Receipt Date: 20111025
  Transmission Date: 20120403
  Serious: Yes (Hospitalization, Other)
  Sender: FDA-Public Use
  Company Number: AU-MERCK-1108USA02818

PATIENT
  Age: 74 Year
  Sex: Female

DRUGS (2)
  1. FOSAMAX [Suspect]
     Indication: OSTEOPOROSIS
     Route: 048
     Dates: start: 19990101, end: 20060101
  2. ACTONEL [Suspect]
     Route: 065
     Dates: start: 20090101, end: 20110301

REACTIONS (17)
  - OSTEOARTHRITIS [None]
  - VITAMIN D DEFICIENCY [None]
  - MUSCULOSKELETAL PAIN [None]
  - PATHOLOGICAL FRACTURE [None]
  - STRESS FRACTURE [None]
  - WEIGHT INCREASED [None]
  - FALL [None]
  - HYPERSENSITIVITY [None]
  - ARTHRALGIA [None]
  - GLUCOSE TOLERANCE IMPAIRED [None]
  - HORMONE LEVEL ABNORMAL [None]
  - GLAUCOMA [None]
  - FEMUR FRACTURE [None]
  - NECK PAIN [None]
  - PERNICIOUS ANAEMIA [None]
  - IODINE ALLERGY [None]
  - DRUG HYPERSENSITIVITY [None]
